FAERS Safety Report 10269711 (Version 1)
Quarter: 2014Q2

REPORT INFORMATION
  Report Type: Spontaneous
  Country: US (occurrence: None)
  Receive Date: 20140623
  Receipt Date: 20140623
  Transmission Date: 20141212
  Serious: Yes (Hospitalization)
  Sender: FDA-Public Use
  Company Number: US-145549

PATIENT
  Sex: Female

DRUGS (1)
  1. BOTULISM ANTITOXIN [Suspect]
     Indication: BOTULISM
     Dates: start: 20140609

REACTIONS (2)
  - Cardio-respiratory arrest [None]
  - Septic shock [None]
